FAERS Safety Report 6681677-7 (Version None)
Quarter: 2010Q2

REPORT INFORMATION
  Report Type: 
  Country: None (occurrence: None)
  Receive Date: 20100412
  Receipt Date: 20100402
  Transmission Date: 20101027
  Serious: Yes (Death)
  Sender: FDA-Public Use
  Company Number: OMPQ-NO-0805S-0331

PATIENT
  Age: 79 Year
  Sex: Male

DRUGS (1)
  1. OMNIPAQUE 350 [Suspect]
     Indication: DRUG USE FOR UNKNOWN INDICATION
     Dosage: SINGLE DOSE
     Dates: start: 20060401, end: 20060401

REACTIONS (3)
  - ANAPHYLACTOID SHOCK [None]
  - HYPOXIC ENCEPHALOPATHY [None]
  - PNEUMONIA ASPIRATION [None]
